FAERS Safety Report 7435403-4 (Version None)
Quarter: 2011Q2

REPORT INFORMATION
  Report Type: 
  Country: None (occurrence: None)
  Receive Date: 20110425
  Receipt Date: 20110421
  Transmission Date: 20111010
  Serious: Yes (Other)
  Sender: FDA-Public Use
  Company Number: US-PFIZER INC-2011087405

PATIENT
  Age: 73 Year
  Sex: Female
  Weight: 58.957 kg

DRUGS (3)
  1. PRAVASTATIN [Concomitant]
     Indication: BLOOD CHOLESTEROL INCREASED
     Dosage: 20 MG, 1X/DAY
  2. LYRICA [Suspect]
     Indication: PROCEDURAL PAIN
     Dosage: 50MG IN AM AND 35MG AT NIGHT
     Route: 048
  3. LISINOPRIL [Concomitant]
     Indication: HYPERTENSION
     Dosage: 10 MG, 1X/DAY

REACTIONS (6)
  - DRY MOUTH [None]
  - THINKING ABNORMAL [None]
  - DIZZINESS [None]
  - WEIGHT INCREASED [None]
  - VISION BLURRED [None]
  - SOMNOLENCE [None]
